FAERS Safety Report 24143612 (Version 1)
Quarter: 2024Q3

REPORT INFORMATION
  Report Type: Spontaneous
  Country: NL (occurrence: NL)
  Receive Date: 20240727
  Receipt Date: 20240727
  Transmission Date: 20241017
  Serious: Yes (Life-Threatening, Hospitalization, Other)
  Sender: SANOFI AVENTIS
  Company Number: None

PATIENT
  Age: 54 Year
  Sex: Female

DRUGS (1)
  1. TERIFLUNOMIDE [Suspect]
     Active Substance: TERIFLUNOMIDE
     Indication: Multiple sclerosis
     Dosage: 14 MG, QD (1 PER DAY, 1 PIECE)
     Route: 065
     Dates: start: 20160508, end: 20240601

REACTIONS (2)
  - Cerebral haemorrhage [Recovering/Resolving]
  - Hypertension [Recovering/Resolving]
